FAERS Safety Report 8811813 (Version 1)
Quarter: 2012Q4

REPORT INFORMATION
  Report Type: 
  Country: CA (occurrence: CA)
  Receive Date: 20120927
  Receipt Date: 20120927
  Transmission Date: 20130627
  Serious: Yes (Hospitalization)
  Sender: FDA-Public Use
  Company Number: CA-GLAXOSMITHKLINE-A0993580A

PATIENT
  Age: 57 None
  Sex: Female

DRUGS (3)
  1. REVOLADE [Suspect]
     Indication: IDIOPATHIC THROMBOCYTOPENIC PURPURA
     Dosage: 50MG Per day
     Route: 065
     Dates: start: 20120814, end: 20120823
  2. OXAZEPAM [Concomitant]
  3. ACYCLOVIR [Concomitant]

REACTIONS (7)
  - Sjogren^s syndrome [Unknown]
  - Nausea [Recovered/Resolved]
  - Vomiting [Recovered/Resolved]
  - Ill-defined disorder [Not Recovered/Not Resolved]
  - Abdominal pain [Recovered/Resolved]
  - Liver function test abnormal [Unknown]
  - Blood bilirubin increased [Unknown]
